FAERS Safety Report 9463135 (Version 3)
Quarter: 2014Q1

REPORT INFORMATION
  Report Type: Report from Study
  Country: US (occurrence: US)
  Receive Date: 20130816
  Receipt Date: 20140210
  Transmission Date: 20141002
  Serious: Yes (Death, Other)
  Sender: FDA-Public Use
  Company Number: US-ROCHE-1262928

PATIENT
  Sex: 0

DRUGS (5)
  1. RITUXIMAB [Suspect]
     Indication: ANTI-NEUTROPHIL CYTOPLASMIC ANTIBODY POSITIVE VASCULITIS
     Dosage: FOR 4 WEEKS
     Route: 042
  2. PREDNISONE [Suspect]
     Indication: ANTI-NEUTROPHIL CYTOPLASMIC ANTIBODY POSITIVE VASCULITIS
     Dosage: TAPERED AND DISCONTINUED OVER A PERIOD OF 5-5.5 MONTHS
     Route: 065
  3. METHYLPREDNISOLONE [Suspect]
     Indication: ANTI-NEUTROPHIL CYTOPLASMIC ANTIBODY POSITIVE VASCULITIS
     Dosage: ONE TO THREE PULSES
     Route: 042
  4. CYCLOPHOSPHAMIDE [Suspect]
     Indication: ANTI-NEUTROPHIL CYTOPLASMIC ANTIBODY POSITIVE VASCULITIS
     Dosage: OF BODY WEIGHT, ADJUSTED FOR RENAL INSUFFICIENCY
     Route: 065
  5. AZATHIOPRINE [Suspect]
     Indication: ANTI-NEUTROPHIL CYTOPLASMIC ANTIBODY POSITIVE VASCULITIS
     Dosage: PATIENTS IN THE CONTROL GROUP WHO HAD A REMISSION BETWEEN 3 AND 6 MONTHS WERE ELIGIBLE TO SWITCH FRO
     Route: 065

REACTIONS (17)
  - Death [Fatal]
  - Infection [Unknown]
  - Disease recurrence [Unknown]
  - Leukopenia [Unknown]
  - Pneumonia [Unknown]
  - Osteomyelitis [Unknown]
  - Hypersensitivity [Unknown]
  - Prostate cancer [Unknown]
  - Colitis microscopic [Unknown]
  - Thrombocytopenia [Unknown]
  - Papillary thyroid cancer [Unknown]
  - Uterine cancer [Unknown]
  - Prostate cancer [Unknown]
  - Colon cancer [Unknown]
  - Bladder cancer [Unknown]
  - Lung neoplasm malignant [Unknown]
  - Neoplasm malignant [Unknown]
